FAERS Safety Report 8878285 (Version 1)
Quarter: 2012Q4

REPORT INFORMATION
  Report Type: 
  Country: US (occurrence: US)
  Receive Date: 20121025
  Receipt Date: 20121025
  Transmission Date: 20130627
  Serious: No
  Sender: FDA-Public Use
  Company Number: US-AMGEN-USASP2012021799

PATIENT
  Sex: Female

DRUGS (13)
  1. ENBREL [Suspect]
     Indication: PRODUCT USED FOR UNKNOWN INDICATION
     Dosage: 25 mg, 2 times/wk
  2. LEUCOVORIN CA [Concomitant]
     Dosage: 5 mg, UNK
  3. ERYTHROCIN                         /00020901/ [Concomitant]
     Dosage: 500 mg, UNK
  4. LEVOTHYROXIN [Concomitant]
     Dosage: 175 mug, UNK
  5. MULTIVITAMIN AND MINERAL SUPPLEMENT [Concomitant]
     Dosage: UNK
  6. FISH OIL [Concomitant]
     Dosage: UNK
  7. VITAMIN D                          /00318501/ [Concomitant]
     Dosage: UNK unit, UNK
  8. FLAXSEED OIL [Concomitant]
     Dosage: UNK
  9. VITAMIN B12                        /06860901/ [Concomitant]
     Dosage: UNK
  10. CALCIUM +VIT D [Concomitant]
     Dosage: UNK
  11. CO Q 10 [Concomitant]
     Dosage: 10 mg, UNK
  12. VITAMIN B6 [Concomitant]
     Dosage: 250 mg, UNK
  13. MUCINEX D [Concomitant]
     Dosage: UNK

REACTIONS (2)
  - Rash pruritic [Unknown]
  - Infection [Unknown]
